FAERS Safety Report 10036364 (Version 2)
Quarter: 2014Q2

REPORT INFORMATION
  Report Type: Spontaneous
  Country: ZA (occurrence: ZA)
  Receive Date: 20140325
  Receipt Date: 20140529
  Transmission Date: 20141212
  Serious: Yes (Other)
  Sender: FDA-Public Use
  Company Number: ZA-BAXTER-2014BAX014588

PATIENT
  Sex: 0

DRUGS (2)
  1. TISSEEL [Suspect]
     Indication: CORNEAL DISORDER
     Dosage: 1 UNIT
     Route: 065
     Dates: start: 20140306, end: 20140306
  2. TISSEEL [Suspect]
     Indication: OFF LABEL USE

REACTIONS (1)
  - Drug ineffective [Unknown]
